FAERS Safety Report 25922194 (Version 1)
Quarter: 2025Q4

REPORT INFORMATION
  Report Type: Spontaneous
  Country: EU (occurrence: EU)
  Receive Date: 20251015
  Receipt Date: 20251015
  Transmission Date: 20260117
  Serious: Yes (Other)
  Sender: BRISTOL-MYERS SQUIBB COMPANY
  Company Number: EU-ABBVIE-6484309

PATIENT
  Age: 82 Year
  Sex: Male

DRUGS (13)
  1. AZACITIDINE [Suspect]
     Active Substance: AZACITIDINE
     Indication: Product used for unknown indication
     Dosage: 75 MG/M? D1-D7
  2. AZACITIDINE [Suspect]
     Active Substance: AZACITIDINE
  3. AZACITIDINE [Suspect]
     Active Substance: AZACITIDINE
  4. AZACITIDINE [Suspect]
     Active Substance: AZACITIDINE
     Dosage: 50%
     Dates: start: 202205, end: 202208
  5. AZACITIDINE [Suspect]
     Active Substance: AZACITIDINE
     Dosage: 50%
  6. AZACITIDINE [Suspect]
     Active Substance: AZACITIDINE
     Dosage: 50%
     Dates: start: 202209, end: 202307
  7. VENETOCLAX [Suspect]
     Active Substance: VENETOCLAX
     Indication: Product used for unknown indication
     Dosage: D1-D14
     Dates: start: 202201
  8. VENETOCLAX [Suspect]
     Active Substance: VENETOCLAX
     Dosage: DISCONTINUED CYCLE III FROM DAY 6
  9. VENETOCLAX [Suspect]
     Active Substance: VENETOCLAX
  10. VENETOCLAX [Suspect]
     Active Substance: VENETOCLAX
     Dosage: D1-D14
     Dates: start: 202205, end: 202208
  11. VENETOCLAX [Suspect]
     Active Substance: VENETOCLAX
     Dosage: D1-D10
  12. VENETOCLAX [Suspect]
     Active Substance: VENETOCLAX
     Dosage: D1-D10
     Dates: start: 202209, end: 202307
  13. VENETOCLAX [Suspect]
     Active Substance: VENETOCLAX
     Dates: start: 202307, end: 202311

REACTIONS (7)
  - Neutropenia [Unknown]
  - Subdural haematoma [Unknown]
  - Gingival hypertrophy [Unknown]
  - Hyperleukocytosis [Unknown]
  - Hypertension [Unknown]
  - Thrombocytopenia [Recovered/Resolved]
  - Atrial flutter [Unknown]

NARRATIVE: CASE EVENT DATE: 20220101
